FAERS Safety Report 16874366 (Version 1)
Quarter: 2019Q4

REPORT INFORMATION
  Report Type: Spontaneous
  Country: ES (occurrence: ES)
  Receive Date: 20191001
  Receipt Date: 20191001
  Transmission Date: 20200122
  Serious: Yes (Life-Threatening, Hospitalization)
  Sender: FDA-Public Use
  Company Number: ES-MYLANLABS-2019M1091508

PATIENT
  Age: 61 Year
  Sex: Male

DRUGS (6)
  1. METHOTREXATE. [Suspect]
     Active Substance: METHOTREXATE
     Indication: B-CELL LYMPHOMA
     Dosage: DOSIS TOTAL 9098,6 MG, EN DOS
     Route: 042
     Dates: start: 20151128, end: 20151214
  2. ETOPOSIDE. [Interacting]
     Active Substance: ETOPOSIDE
     Indication: B-CELL LYMPHOMA
     Dosage: 92.5 MG, 6 CICLOS, EN PC D?AS 2-4
     Route: 041
     Dates: start: 20150709, end: 20151024
  3. VINCRISTINA                        /00078801/ [Interacting]
     Active Substance: VINCRISTINE
     Indication: B-CELL LYMPHOMA
     Dosage: 0.74 MG, 6 CICLOS, EN PC, DIAS 2-4
     Route: 041
     Dates: start: 20150709, end: 20151024
  4. CICLOFOSFAMIDA [Interacting]
     Active Substance: CYCLOPHOSPHAMIDE
     Indication: B-CELL LYMPHOMA
     Dosage: 1387.5 MG DIA 5 DE CICLO
     Route: 042
     Dates: start: 20150712, end: 20151025
  5. DOXORRUBICINA [Interacting]
     Active Substance: DOXORUBICIN HYDROCHLORIDE
     Indication: B-CELL LYMPHOMA
     Dosage: 18.5 G EN PC, DIAS 2-4 DEL CICLO
     Route: 041
     Dates: start: 20150709, end: 20151024
  6. RITUXIMAB. [Interacting]
     Active Substance: RITUXIMAB
     Indication: B-CELL LYMPHOMA
     Dosage: 693,75 MG 6 CICLOS
     Route: 042
     Dates: start: 20150708, end: 20151021

REACTIONS (2)
  - Acute myeloid leukaemia [Recovered/Resolved with Sequelae]
  - Drug interaction [Unknown]

NARRATIVE: CASE EVENT DATE: 20160508
